FAERS Safety Report 6122839-7 (Version None)
Quarter: 2009Q1

REPORT INFORMATION
  Report Type: 
  Country: None (occurrence: None)
  Receive Date: 20090318
  Receipt Date: 20090311
  Transmission Date: 20090719
  Serious: Yes (Hospitalization)
  Sender: FDA-Public Use
  Company Number: A0772524A

PATIENT
  Age: 66 Year
  Sex: Female

DRUGS (5)
  1. TYKERB [Suspect]
     Indication: BREAST CANCER
     Dosage: 250MCG FOUR TIMES PER DAY
     Route: 048
     Dates: start: 20080701
  2. NAVELBINE [Concomitant]
  3. AVASTIN [Concomitant]
  4. FOSAMAX [Concomitant]
     Route: 042
  5. ZOMETA [Concomitant]

REACTIONS (2)
  - DECREASED APPETITE [None]
  - WEIGHT DECREASED [None]
